FAERS Safety Report 9800652 (Version 2)
Quarter: 2014Q1

REPORT INFORMATION
  Report Type: Spontaneous
  Country: JP (occurrence: JP)
  Receive Date: 20140107
  Receipt Date: 20140131
  Transmission Date: 20141002
  Serious: Yes (Other)
  Sender: FDA-Public Use
  Company Number: JP-ROCHE-1328024

PATIENT
  Age: 73 Year
  Sex: Female

DRUGS (6)
  1. BEVACIZUMAB [Suspect]
     Indication: ADENOCARCINOMA
     Route: 041
  2. CISPLATIN [Suspect]
     Indication: ADENOCARCINOMA
     Route: 041
  3. CISPLATIN [Suspect]
     Indication: ADENOCARCINOMA
     Dosage: 75% OF INITIAL DOSAGE
     Route: 041
  4. PEMETREXED [Suspect]
     Indication: ADENOCARCINOMA
     Route: 041
  5. FOLIC ACID [Concomitant]
     Dosage: DOSAGE IS UNCERTAIN.
     Route: 065
  6. VITAMIN B12 [Concomitant]
     Dosage: DOSAGE IS UNCERTAIN.
     Route: 065

REACTIONS (1)
  - Renal failure [Recovering/Resolving]
